FAERS Safety Report 22523702 (Version 1)
Quarter: 2023Q2

REPORT INFORMATION
  Report Type: Spontaneous
  Country: FR (occurrence: FR)
  Receive Date: 20230606
  Receipt Date: 20230606
  Transmission Date: 20230721
  Serious: Yes (Hospitalization, Other)
  Sender: FDA-Public Use
  Company Number: FR-002147023-PHHY2012FR055478

PATIENT
  Age: 74 Year
  Sex: Female

DRUGS (11)
  1. CIPROFLOXACIN [Suspect]
     Active Substance: CIPROFLOXACIN
     Indication: Product used for unknown indication
     Dosage: 2 DOSAGE FORM, ONCE A DAY (1 DF, BID)
     Route: 048
     Dates: start: 20120402, end: 20120425
  2. AMIKACIN SULFATE [Suspect]
     Active Substance: AMIKACIN SULFATE
     Indication: Pyrexia
     Dosage: UNK, ONCE/SINGLE
     Route: 065
     Dates: start: 20120422
  3. AMIKACIN SULFATE [Suspect]
     Active Substance: AMIKACIN SULFATE
     Indication: Mediastinitis
     Dosage: UNK, ONCE/SINGLE
     Route: 065
     Dates: start: 20120329
  4. AMOXICILLIN [Suspect]
     Active Substance: AMOXICILLIN
     Indication: Product used for unknown indication
     Dosage: UNK
     Route: 065
     Dates: start: 20120402, end: 20120422
  5. ECONAZOLE [Suspect]
     Active Substance: ECONAZOLE
     Indication: Product used for unknown indication
     Dosage: UNK
     Route: 065
     Dates: start: 20120403, end: 20120425
  6. MINISINTROM [Suspect]
     Active Substance: ACENOCOUMAROL
     Indication: Arrhythmia
     Dosage: UNK
     Route: 048
     Dates: start: 20120403, end: 20120425
  7. PIPERACILLIN SODIUM\TAZOBACTAM SODIUM [Suspect]
     Active Substance: PIPERACILLIN SODIUM\TAZOBACTAM SODIUM
     Indication: Product used for unknown indication
     Dosage: UNK
     Route: 065
     Dates: start: 20120329, end: 20120402
  8. BACTRIM [Concomitant]
     Active Substance: SULFAMETHOXAZOLE\TRIMETHOPRIM
     Indication: Toxic skin eruption
     Dosage: UNK
     Route: 065
     Dates: start: 20120422
  9. CORDARONE [Concomitant]
     Active Substance: AMIODARONE HYDROCHLORIDE
     Indication: Atrial fibrillation
     Dosage: UNK, ONCE/SINGLE
     Route: 065
     Dates: start: 20120326
  10. CORDARONE [Concomitant]
     Active Substance: AMIODARONE HYDROCHLORIDE
     Dosage: UNK, ONCE/SINGLE
     Route: 065
     Dates: start: 20120408
  11. FUROSEMIDE [Concomitant]
     Active Substance: FUROSEMIDE
     Indication: Product used for unknown indication
     Dosage: UNK
     Route: 065
     Dates: start: 20120408

REACTIONS (15)
  - Skin exfoliation [Unknown]
  - Angular cheilitis [Unknown]
  - Rash pustular [Unknown]
  - Pruritus [Unknown]
  - Rash macular [Unknown]
  - Rash [Recovered/Resolved]
  - Acute generalised exanthematous pustulosis [Recovered/Resolved]
  - Pyrexia [Unknown]
  - Arrhythmia [Recovered/Resolved]
  - International normalised ratio increased [Unknown]
  - Staphylococcal infection [Unknown]
  - Blood creatine increased [Unknown]
  - Oedema peripheral [Unknown]
  - Candida infection [Unknown]
  - Haemoglobin decreased [Unknown]

NARRATIVE: CASE EVENT DATE: 20120409
